FAERS Safety Report 8077415-6 (Version None)
Quarter: 2012Q1

REPORT INFORMATION
  Report Type: 
  Country: None (occurrence: None)
  Receive Date: 20120127
  Receipt Date: 20120124
  Transmission Date: 20120608
  Serious: Yes (Other)
  Sender: FDA-Public Use
  Company Number: PHHY2011FR111378

PATIENT
  Age: 54 Year
  Sex: Female
  Weight: 64 kg

DRUGS (9)
  1. VOLTAREN [Suspect]
     Dosage: 75 MG, BID
     Route: 048
     Dates: start: 20110701, end: 20110801
  2. DEROXAT [Concomitant]
     Indication: DEPRESSION
     Dates: start: 20060101, end: 20110801
  3. VOLTAREN [Suspect]
     Indication: NECK PAIN
     Dosage: 75 MG, UNK
     Route: 048
  4. VOLTAREN [Suspect]
     Dosage: FOR 3 DAYS
     Route: 048
     Dates: start: 20111214
  5. TETRAZEPAM [Concomitant]
  6. CALCITONIN SALMON [Concomitant]
     Indication: COMPLEX REGIONAL PAIN SYNDROME
  7. PRAZEPAM [Concomitant]
  8. ACETAMINOPHEN [Concomitant]
     Indication: COMPLEX REGIONAL PAIN SYNDROME
  9. ESOMEPRAZOLE SODIUM [Concomitant]

REACTIONS (7)
  - CELLULITIS [None]
  - WEIGHT INCREASED [None]
  - GASTROINTESTINAL DISORDER [None]
  - FLUID RETENTION [None]
  - CONSTIPATION [None]
  - LYMPHOEDEMA [None]
  - DYSPNOEA [None]
